FAERS Safety Report 7237140-8 (Version None)
Quarter: 2010Q4

REPORT INFORMATION
  Report Type: 
  Country: None (occurrence: None)
  Receive Date: 20101130
  Receipt Date: 20091201
  Transmission Date: 20110411
  Serious: Yes (Hospitalization)
  Sender: FDA-Public Use
  Company Number: 2009-195830-NL

PATIENT
  Age: 38 Year
  Sex: Female
  Weight: 74.3899 kg

DRUGS (3)
  1. NUVARING [Suspect]
     Indication: CONTRACEPTION
     Dates: end: 20070627
  2. CALCIUM [Concomitant]
  3. MULTI-VITAMIN [Concomitant]

REACTIONS (2)
  - HEADACHE [None]
  - PULMONARY EMBOLISM [None]
